FAERS Safety Report 11023046 (Version 1)
Quarter: 2015Q2

REPORT INFORMATION
  Report Type: Spontaneous
  Country: DZ (occurrence: DZ)
  Receive Date: 20150413
  Receipt Date: 20150413
  Transmission Date: 20150821
  Serious: Yes (Hospitalization)
  Sender: FDA-Public Use
  Company Number: DZ-SA-2015SA044856

PATIENT
  Age: 64 Year
  Sex: Female
  Weight: 70 kg

DRUGS (8)
  1. TAXOTERE [Suspect]
     Active Substance: DOCETAXEL
     Indication: BREAST CANCER
     Dosage: 20MG
     Route: 042
     Dates: start: 20150316
  2. SOLUPRED [Concomitant]
     Active Substance: PREDNISOLONE
     Dosage: 40 MG J-1 UNTIL J5.
  3. TAXOTERE [Suspect]
     Active Substance: DOCETAXEL
     Indication: BREAST CANCER
     Dosage: 20MG
     Route: 042
     Dates: start: 20150316
  4. CAPECITABINE. [Concomitant]
     Active Substance: CAPECITABINE
     Dates: start: 20141221
  5. ZOMETA [Concomitant]
     Active Substance: ZOLEDRONIC ACID
     Dosage: 1AMP/3WEEKS
     Dates: start: 20141221
  6. ADRIAMYCIN [Concomitant]
     Active Substance: DOXORUBICIN HYDROCHLORIDE
     Dates: start: 20141221
  7. TAXOTERE [Suspect]
     Active Substance: DOCETAXEL
     Indication: BREAST CANCER
     Dosage: 80MG
     Route: 042
  8. SOLU-MEDROL [Concomitant]
     Active Substance: METHYLPREDNISOLONE SODIUM SUCCINATE

REACTIONS (3)
  - Pyrexia [Recovered/Resolved]
  - Thermal burn [Recovered/Resolved]
  - Erythema [Recovered/Resolved]

NARRATIVE: CASE EVENT DATE: 20150323
